FAERS Safety Report 17207628 (Version 1)
Quarter: 2019Q4

REPORT INFORMATION
  Report Type: Spontaneous
  Country: TR (occurrence: TR)
  Receive Date: 20191227
  Receipt Date: 20191227
  Transmission Date: 20200122
  Serious: Yes (Other)
  Sender: FDA-Public Use
  Company Number: TR-TEVA-2019-TR-1159173

PATIENT
  Age: 49 Year
  Sex: Female

DRUGS (5)
  1. PREDNISOLONE. [Suspect]
     Active Substance: PREDNISOLONE
     Indication: DIFFUSE LARGE B-CELL LYMPHOMA
     Dosage: AS A PART OF R-CHOP REGIMEN; 6 COURSES
     Route: 065
     Dates: start: 2006, end: 200612
  2. VINCRISTINE [Suspect]
     Active Substance: VINCRISTINE
     Indication: DIFFUSE LARGE B-CELL LYMPHOMA
     Dosage: AS A PART OF R-CHOP REGIMEN; 6 COURSES
     Route: 065
     Dates: start: 2006, end: 200612
  3. CYCLOPHOSPHAMIDE. [Suspect]
     Active Substance: CYCLOPHOSPHAMIDE
     Indication: DIFFUSE LARGE B-CELL LYMPHOMA
     Dosage: AS A PART OF R-CHOP REGIMEN; 6 COURSES
     Route: 065
     Dates: start: 2006, end: 200612
  4. RITUXIMAB. [Suspect]
     Active Substance: RITUXIMAB
     Indication: DIFFUSE LARGE B-CELL LYMPHOMA
     Dosage: AS A PART OF R-CHOP REGIMEN; 6 COURSES
     Route: 065
     Dates: start: 2006, end: 200612
  5. DOXORUBICIN [Suspect]
     Active Substance: DOXORUBICIN
     Indication: DIFFUSE LARGE B-CELL LYMPHOMA
     Dosage: AS A PART OF R-CHOP REGIMEN; 6 COURSES
     Route: 065
     Dates: start: 2006, end: 200612

REACTIONS (1)
  - Chronic myeloid leukaemia [Recovered/Resolved]

NARRATIVE: CASE EVENT DATE: 2010
